FAERS Safety Report 16161133 (Version 2)
Quarter: 2019Q2

REPORT INFORMATION
  Report Type: Spontaneous
  Country: US (occurrence: US)
  Receive Date: 20190405
  Receipt Date: 20190606
  Transmission Date: 20190711
  Serious: No
  Sender: FDA-Public Use
  Company Number: US-ASTRAZENECA-2019SE40059

PATIENT

DRUGS (1)
  1. FASENRA [Suspect]
     Active Substance: BENRALIZUMAB
     Dosage: Q8 WEEK INJECTION 2 TIMES
     Route: 058

REACTIONS (2)
  - Malaise [Recovered/Resolved]
  - Product use issue [Unknown]
